FAERS Safety Report 10642648 (Version 6)
Quarter: 2015Q3

REPORT INFORMATION
  Report Type: Report from Study
  Country: IT (occurrence: IT)
  Receive Date: 20141210
  Receipt Date: 20150727
  Transmission Date: 20151125
  Serious: Yes (Hospitalization)
  Sender: FDA-Public Use
  Company Number: IT-ROCHE-1426714

PATIENT
  Age: 80 Year
  Sex: Male
  Weight: 79 kg

DRUGS (11)
  1. VINCRISTINE [Suspect]
     Active Substance: VINCRISTINE
     Indication: DIFFUSE LARGE B-CELL LYMPHOMA
     Dosage: DATE OF LAST DOSE (2 MG) PRIOR TO EVENT ONSET: 18/JUN/2014.
     Route: 040
     Dates: start: 20140328
  2. PREDNISONE. [Suspect]
     Active Substance: PREDNISONE
     Indication: DIFFUSE LARGE B-CELL LYMPHOMA
     Dosage: DATE OF LAST DOSE (25 MG) PRIOR TO EVENT ONSET: 24/JUN/2014
     Route: 048
     Dates: start: 20140328
  3. DOXORUBICIN [Suspect]
     Active Substance: DOXORUBICIN
     Indication: DIFFUSE LARGE B-CELL LYMPHOMA
     Dosage: DATE OF LAST DOSE (50 MG) PRIOR TO EVENT ONSET: 18/JUN/2014
     Route: 042
     Dates: start: 20140328
  4. ALLOPURINOL. [Concomitant]
     Active Substance: ALLOPURINOL
     Indication: BLOOD URIC ACID
  5. LERCANIDIPINA [Concomitant]
     Active Substance: LERCANIDIPINE
     Indication: HYPERTENSION
     Route: 065
     Dates: start: 2009
  6. SIMVASTATINA [Concomitant]
     Active Substance: SIMVASTATIN
     Indication: BLOOD CHOLESTEROL
     Route: 065
     Dates: start: 2009
  7. OBINUTUZUMAB [Suspect]
     Active Substance: OBINUTUZUMAB
     Indication: DIFFUSE LARGE B-CELL LYMPHOMA
     Dosage: DATE OF LAST DOSE (VOLUME: 250 ML AND DOSE CONCENTRATION: 4 MG/ML) PRIOR TO EVENT ONSET: 18/JUN/2014
     Route: 042
     Dates: start: 20140327
  8. CALCITRIOL. [Concomitant]
     Active Substance: CALCITRIOL
     Indication: RENAL OSTEODYSTROPHY
     Route: 065
     Dates: start: 20140311
  9. CYCLOPHOSPHAMIDE. [Suspect]
     Active Substance: CYCLOPHOSPHAMIDE
     Indication: DIFFUSE LARGE B-CELL LYMPHOMA
     Dosage: DATE OF LAST DOSE (1433 MG) PRIOR TO EVENT ONSET: 18/JUN/2014
     Route: 042
     Dates: start: 20140328
  10. ALLOPURINOL. [Concomitant]
     Active Substance: ALLOPURINOL
     Indication: PROPHYLAXIS
     Route: 065
     Dates: start: 2009
  11. VALSARTAN. [Concomitant]
     Active Substance: VALSARTAN
     Indication: HYPERTENSION
     Route: 065
     Dates: start: 2009

REACTIONS (4)
  - Leukopenia [Recovered/Resolved]
  - Abdominal pain [Recovered/Resolved]
  - Diarrhoea [Recovered/Resolved]
  - Atrial fibrillation [Recovered/Resolved]

NARRATIVE: CASE EVENT DATE: 20140627
